FAERS Safety Report 6141801-1 (Version None)
Quarter: 2009Q2

REPORT INFORMATION
  Report Type: 
  Country: None (occurrence: None)
  Receive Date: 20090402
  Receipt Date: 20090203
  Transmission Date: 20091009
  Serious: No
  Sender: FDA-Public Use
  Company Number: US-ABBOTT-09P-163-0501627-00

PATIENT
  Sex: Female
  Weight: 56.75 kg

DRUGS (2)
  1. LUPRON DEPOT [Suspect]
     Indication: UTERINE LEIOMYOMA
     Dates: start: 20080408, end: 20080612
  2. LUPRON DEPOT [Suspect]

REACTIONS (2)
  - DIZZINESS [None]
  - SENSORY DISTURBANCE [None]
